FAERS Safety Report 7093479-0 (Version None)
Quarter: 2010Q4

REPORT INFORMATION
  Report Type: 
  Country: None (occurrence: None)
  Receive Date: 20101102
  Receipt Date: 20101015
  Transmission Date: 20110411
  Serious: Yes (Hospitalization)
  Sender: FDA-Public Use
  Company Number: JPI-P-012603

PATIENT
  Age: 61 Year
  Sex: Male
  Weight: 97.0698 kg

DRUGS (15)
  1. XYREM [Suspect]
     Indication: NARCOLEPSY
     Dosage: 4.5 GM (2.25 GM, 2 IN 1 D), ORAL, 9 GM (4.5 GM, 2 IN 1 D), ORAL, ORAL
     Route: 048
     Dates: end: 20100120
  2. XYREM [Suspect]
     Indication: NARCOLEPSY
     Dosage: 4.5 GM (2.25 GM, 2 IN 1 D), ORAL, 9 GM (4.5 GM, 2 IN 1 D), ORAL, ORAL
     Route: 048
     Dates: start: 20100121, end: 20100926
  3. XYREM [Suspect]
     Indication: NARCOLEPSY
     Dosage: 4.5 GM (2.25 GM, 2 IN 1 D), ORAL, 9 GM (4.5 GM, 2 IN 1 D), ORAL, ORAL
     Route: 048
     Dates: start: 20101001, end: 20101001
  4. XYREM [Suspect]
     Indication: NARCOLEPSY
     Dosage: 4.5 GM (2.25 GM, 2 IN 1 D), ORAL, 9 GM (4.5 GM, 2 IN 1 D), ORAL, ORAL
     Route: 048
     Dates: start: 20091223
  5. NADOLOL [Concomitant]
  6. GLIMEPIRIDE [Concomitant]
  7. ARMODAFINIL [Concomitant]
  8. CHLORTHALIDONE [Concomitant]
  9. PANTOPRAZOLE [Concomitant]
  10. LISINOPRIL [Concomitant]
  11. AMLODIPINE [Concomitant]
  12. SIMVASTATIN [Concomitant]
  13. AMLODIPINE [Concomitant]
  14. SIMVASTATIN [Concomitant]
  15. GABAPENTIN [Concomitant]

REACTIONS (4)
  - DIABETES MELLITUS INADEQUATE CONTROL [None]
  - GAIT DISTURBANCE [None]
  - HEADACHE [None]
  - NASOPHARYNGITIS [None]
